FAERS Safety Report 18032204 (Version 3)
Quarter: 2020Q3

REPORT INFORMATION
  Report Type: Spontaneous
  Country: US (occurrence: US)
  Receive Date: 20200716
  Receipt Date: 20200826
  Transmission Date: 20201103
  Serious: Yes (Other)
  Sender: FDA-Public Use
  Company Number: US-ASTRAZENECA-2020SE87683

PATIENT
  Age: 19045 Day
  Sex: Male
  Weight: 98.9 kg

DRUGS (1)
  1. BYDUREON BCISE [Suspect]
     Active Substance: EXENATIDE
     Indication: TYPE 2 DIABETES MELLITUS
     Route: 058
     Dates: start: 202006

REACTIONS (11)
  - Myocardial infarction [Unknown]
  - Cough [Unknown]
  - Eye disorder [Unknown]
  - Blood pressure abnormal [Unknown]
  - Drug dose omission by device [Unknown]
  - Depression [Unknown]
  - Device issue [Unknown]
  - Sleep disorder [Unknown]
  - Injection site mass [Unknown]
  - Device leakage [Unknown]
  - Parkinson^s disease [Unknown]

NARRATIVE: CASE EVENT DATE: 20200708
